FAERS Safety Report 10233698 (Version 1)
Quarter: 2014Q2

REPORT INFORMATION
  Report Type: Spontaneous
  Country: US (occurrence: US)
  Receive Date: 20140612
  Receipt Date: 20140612
  Transmission Date: 20141212
  Serious: Yes (Death)
  Sender: FDA-Public Use
  Company Number: US-PFIZER INC-2014159094

PATIENT
  Age: 54 Year
  Sex: Male
  Weight: 86.17 kg

DRUGS (1)
  1. VFEND [Suspect]
     Indication: GRAFT VERSUS HOST DISEASE
     Dosage: 200 MG, 2X/DAY

REACTIONS (3)
  - Off label use [Fatal]
  - Infection [Fatal]
  - Immune system disorder [Fatal]
